FAERS Safety Report 4819545-5 (Version None)
Quarter: 2005Q4

REPORT INFORMATION
  Report Type: 
  Country: None (occurrence: None)
  Receive Date: 20051102
  Receipt Date: 20051102
  Transmission Date: 20060501
  Serious: Yes (Hospitalization)
  Sender: FDA-Public Use
  Company Number: None

PATIENT
  Sex: Male
  Weight: 80.2867 kg

DRUGS (16)
  1. REVLIMID [Suspect]
     Indication: MULTIPLE MYELOMA
     Dosage: 25MG/DAY PO
     Route: 048
     Dates: start: 20051014
  2. REVLIMID [Suspect]
     Indication: MULTIPLE MYELOMA
     Dosage: 40 MG/DAY PO
     Route: 048
     Dates: start: 20051014
  3. CYTRA-2 [Concomitant]
  4. DECADRON SRC [Concomitant]
  5. LISINOPRIL [Concomitant]
  6. NITROGLYCERIN [Concomitant]
  7. OXYCONTIN [Concomitant]
  8. ATENOLOL [Concomitant]
  9. ZOCOR [Concomitant]
  10. ACIPHEX [Concomitant]
  11. PERCOCET [Concomitant]
  12. COLACE [Concomitant]
  13. SENOKOT [Concomitant]
  14. ASPIRIN [Concomitant]
  15. AREDIA [Concomitant]
  16. ARANESP [Concomitant]

REACTIONS (1)
  - FEBRILE NEUTROPENIA [None]
